FAERS Safety Report 11086830 (Version 2)
Quarter: 2015Q2

REPORT INFORMATION
  Report Type: Spontaneous
  Country: US (occurrence: US)
  Receive Date: 20150504
  Receipt Date: 20150612
  Transmission Date: 20150821
  Serious: Yes (Other)
  Sender: FDA-Public Use
  Company Number: US-AMGEN-USASP2015041863

PATIENT
  Age: 70 Year
  Sex: Female

DRUGS (1)
  1. ENBREL [Suspect]
     Active Substance: ETANERCEPT
     Indication: PSORIATIC ARTHROPATHY
     Dosage: 50 MG, QWK
     Route: 065

REACTIONS (10)
  - Neurological examination abnormal [Recovering/Resolving]
  - Visual impairment [Recovering/Resolving]
  - Cough [Not Recovered/Not Resolved]
  - Nystagmus [Recovering/Resolving]
  - Cognitive disorder [Recovering/Resolving]
  - Sinusitis [Not Recovered/Not Resolved]
  - Stiff person syndrome [Recovering/Resolving]
  - Lacrimation increased [Not Recovered/Not Resolved]
  - Memory impairment [Not Recovered/Not Resolved]
  - Bronchitis [Not Recovered/Not Resolved]

NARRATIVE: CASE EVENT DATE: 201303
